FAERS Safety Report 9261379 (Version 1)
Quarter: 2013Q2

REPORT INFORMATION
  Report Type: Spontaneous
  Country: BR (occurrence: BR)
  Receive Date: 20130429
  Receipt Date: 20130429
  Transmission Date: 20140414
  Serious: Yes (Other)
  Sender: FDA-Public Use
  Company Number: BR-ASTRAZENECA-2013SE27032

PATIENT
  Age: 56 Year
  Sex: Female
  Weight: 72 kg

DRUGS (7)
  1. SELOPRESS [Suspect]
     Indication: HYPERTENSION
     Dosage: 100/12.5 MG DAILY
     Route: 048
     Dates: start: 2003
  2. CRESTOR [Suspect]
     Indication: BLOOD CHOLESTEROL ABNORMAL
     Route: 048
     Dates: start: 2003
  3. SUSTRAT [Concomitant]
     Dates: start: 2002
  4. DIOVAN [Concomitant]
     Indication: HYPERTENSION
     Dates: start: 2009
  5. UNKNOWN [Concomitant]
     Indication: DIABETES MELLITUS
     Dates: start: 2007
  6. ASPIRINA PREVENT [Concomitant]
     Indication: ANTICOAGULANT THERAPY
     Dates: start: 2008
  7. HYDROCHLOROTHIAZIDE [Concomitant]
     Indication: OEDEMA PERIPHERAL
     Dates: start: 2011

REACTIONS (5)
  - Diabetes mellitus [Recovering/Resolving]
  - Chest pain [Recovered/Resolved]
  - Blood pressure increased [Recovered/Resolved]
  - Local swelling [Recovered/Resolved]
  - Drug ineffective [Unknown]
